FAERS Safety Report 17985024 (Version 1)
Quarter: 2020Q3

REPORT INFORMATION
  Report Type: Spontaneous
  Country: HR (occurrence: HR)
  Receive Date: 20200706
  Receipt Date: 20200706
  Transmission Date: 20201103
  Serious: Yes (Hospitalization)
  Sender: FDA-Public Use
  Company Number: HR-PFIZER INC-2020255327

PATIENT
  Age: 53 Year

DRUGS (7)
  1. XELJANZ [Suspect]
     Active Substance: TOFACITINIB CITRATE
     Indication: PSORIASIS
     Dosage: 5 MG, UNKNOWN FREQUENCY (2X5 MG)
     Route: 048
     Dates: start: 201912, end: 20200601
  2. PINOX [LERCANIDIPINE HYDROCHLORIDE] [Concomitant]
     Dosage: 10 MG, 1X/DAY (1X1)
     Route: 048
     Dates: start: 202002
  3. ARES [RABEPRAZOLE SODIUM] [Concomitant]
     Dosage: 20 MG, 1X/DAY
     Route: 048
     Dates: start: 201912
  4. FOLACIN [FOLIC ACID] [Concomitant]
     Active Substance: FOLIC ACID
     Dosage: 5 MG, WEEKLY
     Route: 048
     Dates: start: 2008
  5. CO PERINEVA [Concomitant]
     Active Substance: INDAPAMIDE\PERINDOPRIL ERBUMINE
     Indication: HYPERTENSION
     Dosage: 1 DF, 1X/DAY (DF= 2 MG PERINDOPRIL?TERT?BUTILAMIN AND 0.625 MG INDAPAMIDE)
     Route: 048
     Dates: start: 202002
  6. METHOTREXAT [METHOTREXATE SODIUM] [Concomitant]
     Active Substance: METHOTREXATE SODIUM
     Indication: PSORIASIS
     Dosage: 12.5 MG, WEEKLY
     Dates: start: 2008
  7. ALOPURINOL [Concomitant]
     Active Substance: ALLOPURINOL
     Indication: NEPHROLITHIASIS
     Dosage: 100 MG (2X100 MG)
     Route: 048
     Dates: start: 201907

REACTIONS (4)
  - Onychomadesis [Not Recovered/Not Resolved]
  - Product use in unapproved indication [Unknown]
  - Psoriasis [Not Recovered/Not Resolved]
  - Off label use [Unknown]

NARRATIVE: CASE EVENT DATE: 201912
